FAERS Safety Report 7299852-X (Version None)
Quarter: 2011Q1

REPORT INFORMATION
  Report Type: 
  Country: None (occurrence: None)
  Receive Date: 20110217
  Receipt Date: 20101025
  Transmission Date: 20110831
  Serious: No
  Sender: FDA-Public Use
  Company Number: US-BAYER-201023004BCC

PATIENT
  Sex: Female

DRUGS (2)
  1. ALEVE [Suspect]
     Indication: PAIN
     Dosage: CONSUMER TOOK 3 TO 5 ALEVE
     Dates: start: 20101025
  2. ALEVE [Suspect]
     Indication: OROPHARYNGEAL PAIN
     Dosage: 440 MG, ONCE
     Dates: start: 20101022, end: 20101024

REACTIONS (1)
  - NO ADVERSE EVENT [None]
